FAERS Safety Report 4997777-3 (Version None)
Quarter: 2006Q2

REPORT INFORMATION
  Report Type: 
  Country: None (occurrence: None)
  Receive Date: 20060508
  Receipt Date: 20060424
  Transmission Date: 20061013
  Serious: Yes (Hospitalization, Other)
  Sender: FDA-Public Use
  Company Number: 2006055400

PATIENT
  Sex: Female
  Weight: 67 kg

DRUGS (2)
  1. ZITHROMAX [Suspect]
     Indication: COUGH
     Dosage: ORAL
     Route: 048
     Dates: start: 20060417, end: 20060418
  2. CLARITIN-D [Concomitant]

REACTIONS (16)
  - ABDOMINAL PAIN [None]
  - ANURIA [None]
  - BLOOD CREATININE INCREASED [None]
  - BLOOD POTASSIUM INCREASED [None]
  - BLOOD PRESSURE DECREASED [None]
  - DIALYSIS [None]
  - DRUG TOXICITY [None]
  - DYSPNOEA [None]
  - HEPATIC FAILURE [None]
  - ILL-DEFINED DISORDER [None]
  - INFECTION [None]
  - INTERNATIONAL NORMALISED RATIO INCREASED [None]
  - MYOCARDIAL INFARCTION [None]
  - NECROSIS [None]
  - OLIGURIA [None]
  - RHABDOMYOLYSIS [None]
